FAERS Safety Report 15584189 (Version 1)
Quarter: 2018Q4

REPORT INFORMATION
  Report Type: Spontaneous
  Country: DE (occurrence: DE)
  Receive Date: 20181104
  Receipt Date: 20181104
  Transmission Date: 20190205
  Serious: Yes (Congenital Anomaly)
  Sender: FDA-Public Use
  Company Number: PHHY2018DE142161

PATIENT
  Age: 1 Day
  Sex: Male

DRUGS (7)
  1. RISPERDAL [Suspect]
     Active Substance: RISPERIDONE
     Indication: FOETAL EXPOSURE DURING PREGNANCY
     Dosage: UNK (DOSE OF THE MOTHER: (3 [MG/D (BIS 2) ]/ 2-3 MG/D))
     Route: 064
  2. SEROQUEL [Suspect]
     Active Substance: QUETIAPINE FUMARATE
     Indication: FOETAL EXPOSURE DURING PREGNANCY
     Dosage: UNK (DOSE OF THE MOTHER: (150 [MG/D (BIS 25)/ DOSAGE REDUCED))
     Route: 064
  3. FOLSAEURE [Concomitant]
     Active Substance: FOLIC ACID
     Indication: FOETAL EXPOSURE DURING PREGNANCY
     Dosage: UNK
     Route: 064
  4. VENLAFAXINE RETARD [Suspect]
     Active Substance: VENLAFAXINE HYDROCHLORIDE
     Dosage: UNK (DOSE OF THE MOTHER: 150 MG, QD)
     Route: 064
  5. VENLAFAXINE RETARD [Suspect]
     Active Substance: VENLAFAXINE HYDROCHLORIDE
     Indication: FOETAL EXPOSURE DURING PREGNANCY
     Dosage: UNK (DOSE OF MOTHER: 150 MG, BID)
     Route: 064
  6. LAMOTRIGINE. [Suspect]
     Active Substance: LAMOTRIGINE
     Indication: FOETAL EXPOSURE DURING PREGNANCY
     Dosage: UNK (DOSE OF THE MOTHER: (200 [MG/D (BIS 25) ]/ DOSAGE REDUCED FROM GW 16+6, FINALLY 25MG/D))
     Route: 064
  7. CLOMIPRAMINE HYDROCHLORIDE. [Suspect]
     Active Substance: CLOMIPRAMINE HYDROCHLORIDE
     Indication: FOETAL EXPOSURE DURING PREGNANCY
     Dosage: UNK (DOSE OF THE MOTHER: (300 [MG/D (BIS 112.5) ]/ DOSAGE SLOWLY REDUCED FROM GW 16+6))
     Route: 064

REACTIONS (3)
  - Atrial septal defect [Unknown]
  - Talipes [Unknown]
  - Ventricular septal defect [Unknown]

NARRATIVE: CASE EVENT DATE: 20180212
